FAERS Safety Report 5353659-9 (Version None)
Quarter: 2007Q2

REPORT INFORMATION
  Report Type: 
  Country: None (occurrence: None)
  Receive Date: 20070612
  Receipt Date: 20070531
  Transmission Date: 20071010
  Serious: Yes (Other)
  Sender: FDA-Public Use
  Company Number: GR-AVENTIS-200715112GDDC

PATIENT
  Sex: Female

DRUGS (2)
  1. METRONIDAZOLE [Suspect]
  2. METRONIDAZOLE [Suspect]
     Dosage: DOSE: UNK

REACTIONS (3)
  - ASTHENIA [None]
  - HYPOTENSION [None]
  - NAUSEA [None]
